FAERS Safety Report 19405334 (Version 1)
Quarter: 2021Q2

REPORT INFORMATION
  Report Type: Spontaneous
  Country: FR (occurrence: FR)
  Receive Date: 20210611
  Receipt Date: 20210611
  Transmission Date: 20210717
  Serious: Yes (Hospitalization, Other)
  Sender: FDA-Public Use
  Company Number: FR-MYLANLABS-2021M1007004

PATIENT
  Age: 75 Year
  Sex: Male
  Weight: 72 kg

DRUGS (2)
  1. RINVOQ [Suspect]
     Active Substance: UPADACITINIB
     Indication: POLYARTHRITIS
     Dosage: 15 MILLIGRAM
     Route: 048
     Dates: start: 20200912, end: 20201209
  2. METHOTREXATE. [Suspect]
     Active Substance: METHOTREXATE
     Indication: POLYARTHRITIS
     Dosage: 17.5 MILLIGRAM, QW
     Route: 058
     Dates: start: 20190201, end: 20201209

REACTIONS (6)
  - General physical condition abnormal [Recovering/Resolving]
  - Renal failure [Recovered/Resolved]
  - Leukopenia [Recovering/Resolving]
  - Sepsis [Unknown]
  - Pancytopenia [Recovering/Resolving]
  - Stomatitis [Recovering/Resolving]

NARRATIVE: CASE EVENT DATE: 2020
